FAERS Safety Report 9150042 (Version 1)
Quarter: 2013Q1

REPORT INFORMATION
  Report Type: Spontaneous
  Country: US (occurrence: US)
  Receive Date: 20130308
  Receipt Date: 20130308
  Transmission Date: 20140127
  Serious: Yes (Hospitalization)
  Sender: FDA-Public Use
  Company Number: US-ASTRAZENECA-2013SE14051

PATIENT
  Age: 76 Year
  Sex: Female
  Weight: 88.8 kg

DRUGS (6)
  1. ENTOCORT EC [Suspect]
     Indication: COLITIS MICROSCOPIC
     Route: 048
     Dates: start: 200802, end: 2008
  2. ENTOCORT EC [Suspect]
     Indication: COLITIS MICROSCOPIC
     Route: 048
  3. LISINOPRIL [Suspect]
     Route: 048
  4. LISINOPRIL [Suspect]
     Route: 048
  5. ASACOL [Suspect]
     Indication: COLITIS
     Route: 048
     Dates: start: 200802, end: 2008
  6. COREG [Concomitant]

REACTIONS (6)
  - Dyspnoea [Not Recovered/Not Resolved]
  - Pleural effusion [Recovered/Resolved with Sequelae]
  - Pericardial effusion [Recovered/Resolved with Sequelae]
  - Malaise [Unknown]
  - Diarrhoea [Unknown]
  - Swelling [Not Recovered/Not Resolved]
